FAERS Safety Report 12961743 (Version 2)
Quarter: 2016Q4

REPORT INFORMATION
  Report Type: Spontaneous
  Country: JP (occurrence: JP)
  Receive Date: 20161121
  Receipt Date: 20161220
  Transmission Date: 20170207
  Serious: Yes (Life-Threatening, Hospitalization)
  Sender: FDA-Public Use
  Company Number: JP-JNJFOC-20161119178

PATIENT
  Age: 16 Year
  Sex: Male
  Weight: 50 kg

DRUGS (16)
  1. REMICADE [Suspect]
     Active Substance: INFLIXIMAB
     Indication: RHEUMATOID ARTHRITIS
     Dosage: 220MG
     Route: 042
     Dates: start: 20150820
  2. METOLATE [Concomitant]
     Active Substance: METHOTREXATE
     Route: 048
     Dates: start: 20150801
  3. REMICADE [Suspect]
     Active Substance: INFLIXIMAB
     Indication: RHEUMATOID ARTHRITIS
     Route: 042
     Dates: start: 20160929
  4. BAKTAR [Concomitant]
     Active Substance: SULFAMETHOXAZOLE\TRIMETHOPRIM
     Route: 048
     Dates: start: 20150824
  5. MICARDIS [Concomitant]
     Active Substance: TELMISARTAN
     Route: 048
     Dates: start: 20150831
  6. REMICADE [Suspect]
     Active Substance: INFLIXIMAB
     Indication: RHEUMATOID ARTHRITIS
     Dosage: AT 4 TO 6 WEEKS
     Route: 042
     Dates: start: 20151110
  7. MEVALOTIN [Concomitant]
     Active Substance: PRAVASTATIN SODIUM
     Route: 048
     Dates: start: 20150821
  8. ITRIZOLE [Concomitant]
     Active Substance: ITRACONAZOLE
     Route: 048
     Dates: start: 20150828
  9. FUNGIZONE [Concomitant]
     Active Substance: AMPHOTERICIN B
     Route: 048
     Dates: start: 20160725
  10. REMICADE [Suspect]
     Active Substance: INFLIXIMAB
     Indication: RHEUMATOID ARTHRITIS
     Dosage: 12 TH DOSE
     Route: 042
     Dates: start: 20160824
  11. FOLIAMIN [Concomitant]
     Active Substance: FOLIC ACID
     Route: 048
     Dates: start: 20150727
  12. METOLATE [Concomitant]
     Active Substance: METHOTREXATE
     Route: 048
     Dates: start: 20150808
  13. BAYASPIRIN [Concomitant]
     Active Substance: ASPIRIN
     Route: 048
     Dates: start: 20150811
  14. BONALON [Concomitant]
     Active Substance: ALENDRONATE SODIUM
     Route: 048
     Dates: start: 20150824
  15. FAMOTIDINE. [Concomitant]
     Active Substance: FAMOTIDINE
     Route: 048
     Dates: start: 20150806
  16. TRULICITY [Concomitant]
     Active Substance: DULAGLUTIDE
     Route: 058
     Dates: start: 20160329

REACTIONS (3)
  - Intestinal perforation [Not Recovered/Not Resolved]
  - Hypoalbuminaemia [Unknown]
  - Septic shock [Unknown]

NARRATIVE: CASE EVENT DATE: 20160825
